FAERS Safety Report 5902442-1 (Version None)
Quarter: 2008Q3

REPORT INFORMATION
  Report Type: 
  Country: None (occurrence: None)
  Receive Date: 20080929
  Receipt Date: 20080916
  Transmission Date: 20090109
  Serious: Yes (Hospitalization)
  Sender: FDA-Public Use
  Company Number: FR-ELI_LILLY_AND_COMPANY-FR200806000873

PATIENT
  Age: 67 Year
  Sex: Female

DRUGS (10)
  1. CYMBALTA [Suspect]
     Indication: DEPRESSION
     Dosage: 60 MG, DAILY (1/D)
     Route: 048
     Dates: start: 20080520, end: 20080523
  2. PREVISCAN [Concomitant]
     Dosage: UNK, UNKNOWN
     Route: 065
  3. COVERSYL [Concomitant]
     Dosage: UNK, UNKNOWN
     Route: 065
  4. SIMVASTATIN [Concomitant]
     Dosage: UNK, UNKNOWN
     Route: 065
  5. FUROSEMIDE [Concomitant]
     Dosage: UNK, UNKNOWN
     Route: 065
  6. KARDEGIC [Concomitant]
     Dosage: UNK, UNKNOWN
     Route: 065
  7. ALENDRONATE SODIUM [Concomitant]
     Dosage: UNK, UNKNOWN
     Route: 065
  8. COLECALCIFEROL [Concomitant]
     Dosage: UNK, UNKNOWN
     Route: 065
  9. DEPAKOTE [Concomitant]
     Dosage: UNK, UNKNOWN
     Route: 065
  10. IDEOS [Concomitant]
     Dosage: UNK, UNKNOWN
     Route: 065

REACTIONS (2)
  - FALL [None]
  - SYNCOPE [None]
